FAERS Safety Report 12211687 (Version 2)
Quarter: 2016Q2

REPORT INFORMATION
  Report Type: Spontaneous
  Country: CL (occurrence: CL)
  Receive Date: 20160325
  Receipt Date: 20160419
  Transmission Date: 20160815
  Serious: Yes (Life-Threatening)
  Sender: FDA-Public Use
  Company Number: CL-ASTRAZENECA-2016SE29799

PATIENT
  Age: 832 Month
  Sex: Male
  Weight: 83 kg

DRUGS (2)
  1. CARDIOASPIRINA [Concomitant]
     Active Substance: ASPIRIN
  2. BRILINTA [Suspect]
     Active Substance: TICAGRELOR
     Indication: ANTICOAGULANT THERAPY
     Dosage: 1 TABLET MORNING 1 TABLET AT NIGHT
     Route: 048
     Dates: start: 201509

REACTIONS (1)
  - Cardiac aneurysm [Unknown]

NARRATIVE: CASE EVENT DATE: 201509
